FAERS Safety Report 7739467-X (Version None)
Quarter: 2011Q3

REPORT INFORMATION
  Report Type: 
  Country: None (occurrence: None)
  Receive Date: 20110909
  Receipt Date: 20110831
  Transmission Date: 20111222
  Serious: Yes (Life-Threatening, Hospitalization, Other)
  Sender: FDA-Public Use
  Company Number: DE-JNJFOC-20100605563

PATIENT
  Age: 36 Year
  Sex: Male
  Weight: 72 kg

DRUGS (2)
  1. REMICADE [Suspect]
     Indication: CROHN'S DISEASE
     Route: 042
     Dates: start: 20060627, end: 20070828
  2. HUMIRA [Suspect]
     Indication: CROHN'S DISEASE
     Dates: start: 20070918, end: 20090920

REACTIONS (1)
  - INTESTINAL PERFORATION [None]
